FAERS Safety Report 5710219-5 (Version None)
Quarter: 2008Q2

REPORT INFORMATION
  Report Type: 
  Country: None (occurrence: None)
  Receive Date: 20080418
  Receipt Date: 20080408
  Transmission Date: 20081010
  Serious: Yes (Death, Hospitalization, Other)
  Sender: FDA-Public Use
  Company Number: CA-PFIZER INC-2008019316

PATIENT
  Sex: Male
  Weight: 94 kg

DRUGS (6)
  1. SUTENT [Suspect]
     Indication: RENAL CELL CARCINOMA
     Route: 048
  2. LOPRESSOR [Concomitant]
     Dosage: DAILY DOSE:25MG
     Route: 048
     Dates: start: 20080101, end: 20080318
  3. LASIX [Concomitant]
     Dosage: DAILY DOSE:20MG
     Route: 048
     Dates: start: 20080208, end: 20080307
  4. CODEINE SUL TAB [Concomitant]
     Dosage: DAILY DOSE:15MG
     Route: 048
     Dates: start: 20080208, end: 20080315
  5. TAZOCIN [Concomitant]
     Dosage: DAILY DOSE:4GRAM
     Route: 042
     Dates: start: 20080208, end: 20080210
  6. VANCOMYCIN [Concomitant]
     Dosage: DAILY DOSE:1GRAM
     Route: 042
     Dates: start: 20080210, end: 20080214

REACTIONS (6)
  - HYPOALBUMINAEMIA [None]
  - OEDEMA PERIPHERAL [None]
  - PLEURAL EFFUSION [None]
  - PYOTHORAX [None]
  - RENAL FAILURE ACUTE [None]
  - WOUND INFECTION [None]
